FAERS Safety Report 4707204-9 (Version None)
Quarter: 2005Q3

REPORT INFORMATION
  Report Type: 
  Country: None (occurrence: None)
  Receive Date: 20050701
  Receipt Date: 20050616
  Transmission Date: 20060218
  Serious: Yes (Hospitalization)
  Sender: FDA-Public Use
  Company Number: B0382195A

PATIENT
  Age: 68 Year
  Sex: Male

DRUGS (6)
  1. AUGMENTIN '250' [Suspect]
     Indication: BIOPSY
     Dosage: 1 GRAM (S)/ TWICE PER DAY
  2. NICOUMALONE (NICOUMALONE) [Suspect]
     Indication: ATRIAL FIBRILLATION
  3. CORTISONE ACETATE [Suspect]
  4. VITAMIN K [Concomitant]
  5. SOTALOL HCL [Concomitant]
  6. ASPIRIN [Concomitant]

REACTIONS (11)
  - ANOREXIA [None]
  - DRUG INTERACTION [None]
  - ECCHYMOSIS [None]
  - HEPATITIS CHOLESTATIC [None]
  - HEPATOMEGALY [None]
  - HEPATOTOXICITY [None]
  - INTERNATIONAL NORMALISED RATIO INCREASED [None]
  - NAUSEA [None]
  - OVERDOSE [None]
  - PRURITUS [None]
  - VOMITING [None]
